FAERS Safety Report 4279926-8 (Version None)
Quarter: 2004Q1

REPORT INFORMATION
  Report Type: 
  Country: None (occurrence: None)
  Receive Date: 20040127
  Receipt Date: 20040127
  Transmission Date: 20041129
  Serious: No
  Sender: FDA-Public Use
  Company Number: None

PATIENT
  Sex: Female
  Weight: 72.1219 kg

DRUGS (1)
  1. QUININE SULF 260MG [Suspect]
     Indication: MUSCLE CRAMP
     Dosage: ONCE PO QHS

REACTIONS (1)
  - NIGHT CRAMPS [None]
